FAERS Safety Report 6077612-5 (Version None)
Quarter: 2009Q1

REPORT INFORMATION
  Report Type: 
  Country: None (occurrence: None)
  Receive Date: 20090213
  Receipt Date: 20090205
  Transmission Date: 20090719
  Serious: Yes (Disabling)
  Sender: FDA-Public Use
  Company Number: CH-ASTRAZENECA-2009PK00535

PATIENT
  Age: 60 Year
  Sex: Male
  Weight: 55 kg

DRUGS (8)
  1. CASODEX [Suspect]
     Indication: PROSTATE CANCER
     Route: 048
     Dates: start: 20050101, end: 20081029
  2. CASODEX [Suspect]
     Route: 048
     Dates: start: 20081030, end: 20081106
  3. CASODEX [Suspect]
     Route: 048
     Dates: start: 20081107, end: 20081101
  4. CASODEX [Suspect]
     Route: 048
     Dates: start: 20080101, end: 20080101
  5. CASODEX [Suspect]
     Route: 048
     Dates: start: 20080101
  6. LUCRIN [Suspect]
     Indication: PROSTATE CANCER
     Route: 030
     Dates: start: 20070101
  7. SOLUTIO SACCH [Concomitant]
     Indication: HYPERTENSION
     Dates: start: 20080601
  8. BURGERSTEIN SELENVITAL [Concomitant]
     Dates: start: 20050101

REACTIONS (1)
  - TINNITUS [None]
